FAERS Safety Report 15431343 (Version 2)
Quarter: 2019Q2

REPORT INFORMATION
  Report Type: Report from Study
  Country: US (occurrence: US)
  Receive Date: 20180926
  Receipt Date: 20190425
  Transmission Date: 20190711
  Serious: Yes (Other)
  Sender: FDA-Public Use
  Company Number: PHEH2018US039396

PATIENT
  Sex: Female

DRUGS (1)
  1. GILENYA [Suspect]
     Active Substance: FINGOLIMOD HYDROCHLORIDE
     Indication: MULTIPLE SCLEROSIS
     Dosage: 0.5 MG, QD
     Route: 048
     Dates: start: 20180617

REACTIONS (11)
  - Cerebral atrophy [Not Recovered/Not Resolved]
  - Arthritis [Not Recovered/Not Resolved]
  - Central nervous system lesion [Not Recovered/Not Resolved]
  - Migraine [Recovering/Resolving]
  - Arthralgia [Unknown]
  - Headache [Recovering/Resolving]
  - Gait disturbance [Unknown]
  - Dizziness [Recovering/Resolving]
  - Vision blurred [Not Recovered/Not Resolved]
  - Intervertebral disc space narrowing [Not Recovered/Not Resolved]
  - Fatigue [Unknown]
